FAERS Safety Report 8504322-4 (Version None)
Quarter: 2012Q3

REPORT INFORMATION
  Report Type: 
  Country: None (occurrence: None)
  Receive Date: 20120711
  Receipt Date: 20120709
  Transmission Date: 20120928
  Serious: Yes (Congenital Anomaly)
  Sender: FDA-Public Use
  Company Number: BE-PFIZER INC-2012163663

PATIENT

DRUGS (1)
  1. CABERGOLINE [Suspect]
     Dosage: UNK
     Route: 064
     Dates: start: 19970101

REACTIONS (2)
  - CONGENITAL ABSENCE OF VERTEBRA [None]
  - MATERNAL EXPOSURE TIMING UNSPECIFIED [None]
